FAERS Safety Report 22098782 (Version 1)
Quarter: 2023Q1

REPORT INFORMATION
  Report Type: Spontaneous
  Country: US (occurrence: US)
  Receive Date: 20230315
  Receipt Date: 20230315
  Transmission Date: 20230417
  Serious: No
  Sender: FDA-Public Use
  Company Number: US-TEVA-2023-US-2861061

PATIENT
  Sex: Female

DRUGS (1)
  1. ESTRADIOL [Suspect]
     Active Substance: ESTRADIOL
     Indication: Product used for unknown indication
     Route: 067
     Dates: start: 202211

REACTIONS (7)
  - Illness [Unknown]
  - Vaginal discharge [Unknown]
  - Device difficult to use [Unknown]
  - Product use complaint [Unknown]
  - Device delivery system issue [Unknown]
  - Device occlusion [Unknown]
  - Product physical consistency issue [Unknown]
